FAERS Safety Report 24200651 (Version 1)
Quarter: 2024Q3

REPORT INFORMATION
  Report Type: Spontaneous
  Country: US (occurrence: US)
  Receive Date: 20240812
  Receipt Date: 20240812
  Transmission Date: 20241017
  Serious: No
  Sender: ANI
  Company Number: US-ANIPHARMA-2024-US-040687

PATIENT
  Sex: Female

DRUGS (8)
  1. CORTICOTROPIN [Suspect]
     Active Substance: CORTICOTROPIN
     Indication: Multiple sclerosis
     Dosage: INJECT 80 UNITS (1ML) SUBCUTANEOUSLY ONCE DAILY FOR 3 WEEKS AS NEEDED / REDUCED TO 40 UITS PER DOSE
     Route: 058
  2. PHENERGAN [Concomitant]
     Active Substance: PROMETHAZINE HYDROCHLORIDE
  3. AMBIEN [Concomitant]
     Active Substance: ZOLPIDEM TARTRATE
  4. NEURONTIN [Concomitant]
     Active Substance: GABAPENTIN
  5. TOPAMAX [Concomitant]
     Active Substance: TOPIRAMATE
  6. VALIUM [Concomitant]
     Active Substance: DIAZEPAM
  7. SYNTHROID [Concomitant]
     Active Substance: LEVOTHYROXINE SODIUM
  8. ALBUTEROL [Concomitant]
     Active Substance: ALBUTEROL

REACTIONS (1)
  - Herpes zoster [Unknown]
